FAERS Safety Report 19753871 (Version 1)
Quarter: 2021Q3

REPORT INFORMATION
  Report Type: Spontaneous
  Country: CA (occurrence: CA)
  Receive Date: 20210826
  Receipt Date: 20210826
  Transmission Date: 20211014
  Serious: Yes (Hospitalization, Other)
  Sender: FDA-Public Use
  Company Number: CA-AUROBINDO-AUR-APL-2021-036119

PATIENT
  Age: 55 Year
  Sex: Male

DRUGS (3)
  1. ATORVASTATIN TABLETS [Interacting]
     Active Substance: ATORVASTATIN
     Indication: PROPHYLAXIS
     Dosage: 80 MILLIGRAM, ONCE A DAY
     Route: 065
  2. CIPROFLOXACIN FILM?COATED TABLETS [Suspect]
     Active Substance: CIPROFLOXACIN
     Indication: PNEUMONIA
     Dosage: 1500 MILLIGRAM, TWO TIMES A DAY
     Route: 048
  3. AMIODARONE [Interacting]
     Active Substance: AMIODARONE
     Indication: PRODUCT USED FOR UNKNOWN INDICATION
     Dosage: UNK
     Route: 065

REACTIONS (8)
  - Blood lactate dehydrogenase increased [Recovered/Resolved]
  - Blood creatine increased [Recovered/Resolved]
  - Pneumonia [Recovered/Resolved]
  - Chromaturia [Recovered/Resolved]
  - Rhabdomyolysis [Recovered/Resolved]
  - Drug interaction [Recovered/Resolved]
  - Blood creatine phosphokinase increased [Recovered/Resolved]
  - Myoglobin urine present [Recovered/Resolved]
